FAERS Safety Report 8599431-8 (Version None)
Quarter: 2012Q3

REPORT INFORMATION
  Report Type: 
  Country: None (occurrence: None)
  Receive Date: 20120816
  Receipt Date: 20120807
  Transmission Date: 20120928
  Serious: Yes (Other)
  Sender: FDA-Public Use
  Company Number: US-JNJFOC-20120805176

PATIENT

DRUGS (8)
  1. CYTARABINE [Suspect]
     Indication: ACUTE LYMPHOCYTIC LEUKAEMIA
     Dosage: ON DAY 1 OR DAYS 8, 15 AND 22
     Route: 037
  2. DEXAMETHASONE [Suspect]
     Indication: ACUTE LYMPHOCYTIC LEUKAEMIA
     Dosage: PER DAY DIVIDED INTO 2 DOSES WAS GIVEN ORALLY FOR 14 CONSECUTIVE DAYS
     Route: 048
  3. METHOTREXATE [Suspect]
     Indication: ACUTE LYMPHOCYTIC LEUKAEMIA
     Dosage: ON DAY 15 OR DAYS 8, 15 AND 22
     Route: 037
  4. BORTEZOMIB [Suspect]
     Indication: ACUTE LYMPHOCYTIC LEUKAEMIA
     Dosage: PER DOSE ON DAYS 1, 4, 8 AND 11
     Route: 042
  5. VINCRISTINE [Suspect]
     Indication: ACUTE LYMPHOCYTIC LEUKAEMIA
     Dosage: PER DOSE (2 MG MAXIMUM DOSE) WAS ADMINISTERED INTRAVENOUSLY BY PUSH ON DAY 1, 8, 15 AND 22
     Route: 042
  6. HYDROCORTISONE [Suspect]
     Indication: ACUTE LYMPHOCYTIC LEUKAEMIA
     Dosage: ON DAYS 8, 15 AND 22
     Route: 037
  7. DOXORUBICIN HYDROCHLORIDE [Suspect]
     Indication: ACUTE LYMPHOCYTIC LEUKAEMIA
     Dosage: OVER 15-30 MINUTES ON DAY 1
     Route: 042
  8. PEG-ASPARAGINASE [Suspect]
     Indication: ACUTE LYMPHOCYTIC LEUKAEMIA
     Dosage: 2500 UNITS/M2/DOSE WAS GIVEN INTRAMUSCULARLY AS 4 WEEKLY DOSES
     Route: 030

REACTIONS (3)
  - HYPERTENSION [None]
  - HYPOTENSION [None]
  - OFF LABEL USE [None]
